FAERS Safety Report 16032252 (Version 1)
Quarter: 2019Q1

REPORT INFORMATION
  Report Type: Spontaneous
  Country: US (occurrence: US)
  Receive Date: 20190304
  Receipt Date: 20190304
  Transmission Date: 20190418
  Serious: No
  Sender: FDA-Public Use
  Company Number: US-009507513-1902USA011300

PATIENT
  Sex: Male

DRUGS (1)
  1. PRINIVIL [Suspect]
     Active Substance: LISINOPRIL
     Indication: BLOOD PRESSURE MEASUREMENT
     Dosage: 20 MILLIGRAM

REACTIONS (4)
  - Peripheral vascular disorder [Unknown]
  - Gait disturbance [Unknown]
  - Back pain [Unknown]
  - Musculoskeletal chest pain [Unknown]
